FAERS Safety Report 23774477 (Version 1)
Quarter: 2024Q2

REPORT INFORMATION
  Report Type: Spontaneous
  Country: US (occurrence: US)
  Receive Date: 20240423
  Receipt Date: 20240423
  Transmission Date: 20240716
  Serious: Yes (Other)
  Sender: FDA-Public Use
  Company Number: US-BAYER-2024A059970

PATIENT
  Age: 60 Year
  Sex: Male

DRUGS (2)
  1. ASPIRIN [Interacting]
     Active Substance: ASPIRIN
     Indication: Dressler^s syndrome
     Dosage: HIGH-DOSE
  2. COLCHICINE [Interacting]
     Active Substance: COLCHICINE
     Indication: Dressler^s syndrome

REACTIONS (2)
  - Pericardial effusion [None]
  - Labelled drug-drug interaction issue [None]
